FAERS Safety Report 9882577 (Version 2)
Quarter: 2014Q3

REPORT INFORMATION
  Report Type: Spontaneous
  Country: US (occurrence: US)
  Receive Date: 20140207
  Receipt Date: 20140812
  Transmission Date: 20150326
  Serious: Yes (Death, Hospitalization)
  Sender: FDA-Public Use
  Company Number: US-ACTELION-A-US2014-94410

PATIENT
  Age: 77 Year
  Sex: Female

DRUGS (1)
  1. OPSUMIT [Suspect]
     Active Substance: MACITENTAN
     Indication: PULMONARY ARTERIAL HYPERTENSION
     Dosage: 10 MG, QD
     Route: 048
     Dates: start: 20130729, end: 201401

REACTIONS (13)
  - Ecchymosis [Fatal]
  - Hyperglycaemia [Unknown]
  - Thrombocytopenia [Fatal]
  - Pyrexia [Fatal]
  - General physical health deterioration [Fatal]
  - Fall [Unknown]
  - Anaemia [Fatal]
  - Acute myeloid leukaemia [Fatal]
  - Subdural haematoma [Fatal]
  - Transfusion [Unknown]
  - Head injury [Unknown]
  - Myelodysplastic syndrome [Fatal]
  - Blood count abnormal [Fatal]

NARRATIVE: CASE EVENT DATE: 201401
